FAERS Safety Report 6285205-X (Version None)
Quarter: 2009Q3

REPORT INFORMATION
  Report Type: 
  Country: None (occurrence: None)
  Receive Date: 20090727
  Receipt Date: 20090720
  Transmission Date: 20100115
  Serious: Yes (Hospitalization, Other)
  Sender: FDA-Public Use
  Company Number: PHHY2009JO29823

PATIENT
  Age: 73 Year
  Sex: Male

DRUGS (2)
  1. DICLOFENAC SODIUM [Suspect]
     Indication: BACK PAIN
     Route: 065
  2. INDOMETHACIN [Suspect]

REACTIONS (18)
  - ASTHENIA [None]
  - BLOOD UREA INCREASED [None]
  - COLON POLYPECTOMY [None]
  - EXPLORATIVE LAPAROTOMY [None]
  - FIBROSIS [None]
  - GASTROINTESTINAL EROSION [None]
  - GASTROINTESTINAL INFLAMMATION [None]
  - HAEMOGLOBIN DECREASED [None]
  - HYPOALBUMINAEMIA [None]
  - HYPOPROTEINAEMIA [None]
  - INTESTINAL DIAPHRAGM DISEASE [None]
  - INTESTINAL POLYP [None]
  - MELAENA [None]
  - PALLOR [None]
  - SMALL INTESTINAL HAEMORRHAGE [None]
  - SMALL INTESTINAL RESECTION [None]
  - SYNCOPE [None]
  - VOMITING [None]
